FAERS Safety Report 20140528 (Version 1)
Quarter: 2021Q4

REPORT INFORMATION
  Report Type: Spontaneous
  Country: US (occurrence: US)
  Receive Date: 20211202
  Receipt Date: 20211202
  Transmission Date: 20220304
  Serious: No
  Sender: FDA-Public Use
  Company Number: US-BEH-2021138783

PATIENT
  Sex: Male

DRUGS (2)
  1. HIZENTRA [Suspect]
     Active Substance: HUMAN IMMUNOGLOBULIN G
     Indication: Immunodeficiency common variable
     Dosage: 1 GRAM  (TOTAL DOSE: 5 GRAM), QW
     Route: 058
     Dates: start: 202007
  2. HIZENTRA [Suspect]
     Active Substance: HUMAN IMMUNOGLOBULIN G
     Dosage: 4 GRAM (TOTAL DOSE: 5 GRAM), QW
     Route: 058
     Dates: start: 202007

REACTIONS (2)
  - Infection [Unknown]
  - Weight fluctuation [Unknown]
